FAERS Safety Report 25502000 (Version 1)
Quarter: 2025Q3

REPORT INFORMATION
  Report Type: Report from Study
  Country: BR (occurrence: BR)
  Receive Date: 20250702
  Receipt Date: 20250702
  Transmission Date: 20251021
  Serious: Yes (Other)
  Sender: UCB
  Company Number: BR-UCBSA-2025039314

PATIENT
  Sex: Male

DRUGS (5)
  1. LACOSAMIDE [Suspect]
     Active Substance: LACOSAMIDE
     Indication: Seizure
  2. LACOSAMIDE [Suspect]
     Active Substance: LACOSAMIDE
  3. LAMOTRIGINE [Suspect]
     Active Substance: LAMOTRIGINE
     Indication: Seizure
  4. LAMOTRIGINE [Suspect]
     Active Substance: LAMOTRIGINE
  5. LEVETIRACETAM [Concomitant]
     Active Substance: LEVETIRACETAM
     Indication: Seizure

REACTIONS (2)
  - Petit mal epilepsy [Unknown]
  - Seizure [Unknown]
